FAERS Safety Report 21096389 (Version 1)
Quarter: 2022Q3

REPORT INFORMATION
  Report Type: Spontaneous
  Country: US (occurrence: None)
  Receive Date: 20220718
  Receipt Date: 20220718
  Transmission Date: 20221026
  Serious: Yes (Death)
  Sender: FDA-Public Use
  Company Number: None

PATIENT
  Age: 63 Year
  Sex: Female
  Weight: 51.9 kg

DRUGS (11)
  1. CAPECITABINE [Suspect]
     Active Substance: CAPECITABINE
     Indication: Breast cancer female
     Dosage: FREQUENCY : 3 TIMES A DAY;?
     Route: 048
     Dates: start: 20220603, end: 20220717
  2. ALBUTEROL SULFATE [Concomitant]
     Active Substance: ALBUTEROL SULFATE
  3. CLONAZEPAM [Concomitant]
     Active Substance: CLONAZEPAM
  4. LETROZOLE [Concomitant]
     Active Substance: LETROZOLE
  5. METRONIDAZOLE [Concomitant]
     Active Substance: METRONIDAZOLE
  6. MIRTAZAPINE [Concomitant]
     Active Substance: MIRTAZAPINE
  7. morphine sulfate 30mg [Concomitant]
  8. MORPHINE SULFATE [Concomitant]
     Active Substance: MORPHINE SULFATE
  9. MORPHINE SULFATE [Concomitant]
     Active Substance: MORPHINE SULFATE
  10. prochlorperazine 10mg [Concomitant]
  11. vitamin b12 1000mcg [Concomitant]

REACTIONS (1)
  - Death [None]

NARRATIVE: CASE EVENT DATE: 20220717
